FAERS Safety Report 8846942 (Version 1)
Quarter: 2012Q4

REPORT INFORMATION
  Report Type: 
  Country: US (occurrence: US)
  Receive Date: 20121018
  Receipt Date: 20121018
  Transmission Date: 20130627
  Serious: Yes (Hospitalization)
  Sender: FDA-Public Use
  Company Number: US-BAYER-2012-106857

PATIENT
  Age: 71 Year
  Sex: Female

DRUGS (20)
  1. CIPRO [Suspect]
     Indication: URINARY TRACT INFECTION
     Dosage: UNK
     Route: 048
     Dates: start: 20120328, end: 20120404
  2. UNSPECIFIED INGREDIENT [Suspect]
     Dosage: UNK
     Dates: start: 20120312
  3. PREDNISONE [Suspect]
     Dosage: UNK
     Route: 048
     Dates: start: 20120312
  4. CYCLOPHOSPHAMIDE [Suspect]
     Dosage: UNK
     Route: 042
     Dates: start: 20120312
  5. DOXORUBICIN HYDROCHLORIDE [Suspect]
     Dosage: UNK
     Route: 042
     Dates: start: 20120312
  6. VINCRISTINE [Suspect]
     Dosage: UNK
     Route: 042
     Dates: start: 20120312
  7. COZAAR [Concomitant]
     Indication: HYPERTENSION
  8. EXELON [Concomitant]
     Indication: COGNITIVE DISORDER
     Dosage: UNK
     Dates: start: 2010
  9. CLONAZEPAM [Concomitant]
     Dosage: UNK
     Dates: start: 2010
  10. HYDROCHLOROTHIAZIDE [Concomitant]
     Indication: HYPERTENSION
     Dosage: UNK
     Dates: start: 2010
  11. PRILOSEC [Concomitant]
     Indication: PROPHYLAXIS
     Dosage: UNK
     Dates: start: 2010
  12. SINEMET [Concomitant]
     Indication: PARKINSON^S DISEASE
     Dosage: UNK
     Dates: start: 2010
  13. LEVOTHYROXINE [Concomitant]
     Indication: HYPOTHYROIDISM
  14. LOSARTAN [Concomitant]
     Indication: HYPERTENSION
     Dosage: UNK
     Dates: start: 2010
  15. TYLENOL 8 HOUR [Concomitant]
     Dosage: UNK
     Dates: start: 20120328, end: 20120328
  16. TYLENOL 8 HOUR [Concomitant]
     Dosage: UNK
     Dates: start: 20120404, end: 20120404
  17. TYLENOL 8 HOUR [Concomitant]
     Dosage: UNK
     Dates: start: 20120502, end: 20120502
  18. ZOFRAN [Concomitant]
     Dosage: UNK
     Dates: start: 20120404, end: 20120404
  19. ZOFRAN [Concomitant]
     Dosage: UNK
     Dates: start: 20120502, end: 20120502
  20. HYDROCORTISONE [Concomitant]
     Dosage: UNK
     Dates: start: 20120328, end: 20120328

REACTIONS (1)
  - Diarrhoea [Recovered/Resolved]
